FAERS Safety Report 5117307-5 (Version None)
Quarter: 2006Q3

REPORT INFORMATION
  Report Type: 
  Country: None (occurrence: None)
  Receive Date: 20060929
  Receipt Date: 20060919
  Transmission Date: 20061208
  Serious: Yes (Other)
  Sender: FDA-Public Use
  Company Number: FR-JNJFOC-20060806312

PATIENT
  Sex: Female
  Weight: 51 kg

DRUGS (3)
  1. TRIELLA [Suspect]
     Dosage: ON A NEW BATCH
     Route: 048
  2. TRIELLA [Suspect]
     Dosage: ON BATCH NUMBER 6BSK000 EXPIRY DATE 2009
     Route: 048
  3. TRIELLA [Suspect]
     Indication: CONTRACEPTION
     Route: 048

REACTIONS (3)
  - FATIGUE [None]
  - FEELING DRUNK [None]
  - HEAD DISCOMFORT [None]
